FAERS Safety Report 17493961 (Version 1)
Quarter: 2020Q1

REPORT INFORMATION
  Report Type: Spontaneous
  Country: US (occurrence: US)
  Receive Date: 20200221
  Receipt Date: 20200221
  Transmission Date: 20200409
  Serious: Yes (Other)
  Sender: FDA-Public Use
  Company Number: None

PATIENT
  Age: 31 Year
  Sex: Male
  Weight: 82.55 kg

DRUGS (1)
  1. LEVOFLOXACIN 500MG [Suspect]
     Active Substance: LEVOFLOXACIN
     Indication: EPIDIDYMITIS
     Route: 048
     Dates: start: 20200213, end: 20200215

REACTIONS (16)
  - Anxiety [None]
  - Muscle twitching [None]
  - Therapy cessation [None]
  - Impaired work ability [None]
  - Inadequate analgesia [None]
  - Hypoaesthesia [None]
  - Poor quality sleep [None]
  - Tendon pain [None]
  - Pain in extremity [None]
  - Paraesthesia [None]
  - Asthenia [None]
  - Gait disturbance [None]
  - Visual impairment [None]
  - Headache [None]
  - Fatigue [None]
  - Discomfort [None]

NARRATIVE: CASE EVENT DATE: 20200213
